FAERS Safety Report 25901176 (Version 1)
Quarter: 2025Q4

REPORT INFORMATION
  Report Type: Spontaneous
  Country: US (occurrence: US)
  Receive Date: 20251009
  Receipt Date: 20251009
  Transmission Date: 20260117
  Serious: No
  Sender: BRISTOL-MYERS SQUIBB COMPANY
  Company Number: US-BRISTOL-MYERS SQUIBB COMPANY-2025-137672

PATIENT
  Age: 57 Year
  Sex: Male

DRUGS (2)
  1. REVLIMID [Suspect]
     Active Substance: LENALIDOMIDE
     Indication: Plasma cell myeloma
     Dosage: DRUG SEPARATE DOSAGE NUMBER: 14
     Dates: start: 20241015, end: 20251003
  2. REVLIMID [Suspect]
     Active Substance: LENALIDOMIDE
     Dosage: DRUG SEPARATE DOSAGE NUMBER: 14

REACTIONS (1)
  - White blood cell count decreased [Unknown]
